FAERS Safety Report 4641218-2 (Version None)
Quarter: 2005Q2

REPORT INFORMATION
  Report Type: 
  Country: None (occurrence: None)
  Receive Date: 20050419
  Receipt Date: 20050419
  Transmission Date: 20051028
  Serious: No
  Sender: FDA-Public Use
  Company Number: None

PATIENT

DRUGS (2)
  1. GABAPENTIN [Suspect]
     Indication: NEUROPATHY
     Dosage: PO 800 ONE TID   SWITCHED TO GENERIC 2 MONTHS AGO
     Route: 048
  2. KEPPRA [Concomitant]

REACTIONS (4)
  - NEUROPATHIC PAIN [None]
  - PHARMACEUTICAL PRODUCT COMPLAINT [None]
  - SKIN ODOUR ABNORMAL [None]
  - URINE ODOUR ABNORMAL [None]
